FAERS Safety Report 9225700 (Version 1)
Quarter: 2013Q1

REPORT INFORMATION
  Report Type: Spontaneous
  Country: US (occurrence: None)
  Receive Date: 20120914
  Receipt Date: 20120914
  Transmission Date: 20140127
  Serious: Yes (Hospitalization)
  Sender: FDA-Public Use
  Company Number: JPI-P-017927

PATIENT
  Age: 24 Year
  Sex: Female

DRUGS (2)
  1. XYREM(500 MILLIGRAM/MILLILITERS, SOLUTION)(SODIUM OXYBATE) [Suspect]
     Indication: NARCOLEPSY
     Dosage: 4.5GM (2.25GM, 2 IN 1 D), ORAL
     Dates: start: 20110425
  2. UNSPECIFIED ANTIDEPRESSANTS [Concomitant]

REACTIONS (3)
  - Depression [None]
  - Condition aggravated [None]
  - Suicidal ideation [None]
